FAERS Safety Report 6271249-0 (Version None)
Quarter: 2009Q3

REPORT INFORMATION
  Report Type: 
  Country: None (occurrence: None)
  Receive Date: 20090717
  Receipt Date: 20090713
  Transmission Date: 20100115
  Serious: Yes (Other)
  Sender: FDA-Public Use
  Company Number: US-TEVA-197963USA

PATIENT
  Sex: Female
  Weight: 68.1 kg

DRUGS (2)
  1. CLARAVIS [Suspect]
     Route: 048
     Dates: start: 20070524, end: 20071201
  2. YAZ [Concomitant]
     Indication: CONTRACEPTION
     Route: 048

REACTIONS (2)
  - ABORTION SPONTANEOUS [None]
  - PREGNANCY [None]
